FAERS Safety Report 4700625-X (Version None)
Quarter: 2005Q2

REPORT INFORMATION
  Report Type: 
  Country: None (occurrence: None)
  Receive Date: 20050627
  Receipt Date: 20050614
  Transmission Date: 20051028
  Serious: Yes (Death, Life-Threatening)
  Sender: FDA-Public Use
  Company Number: 2004233311FR

PATIENT
  Age: 11 Year
  Sex: Female
  Weight: 33.5 kg

DRUGS (1)
  1. GENOTONORM (SOMATROPIN) [Suspect]
     Indication: PRADER-WILLI SYNDROME
     Dosage: 1.1 MG WEEKLY, SUBCUTANEOUS
     Route: 058
     Dates: start: 20021025, end: 20040830

REACTIONS (5)
  - APNOEA [None]
  - CONVULSION [None]
  - LOSS OF CONSCIOUSNESS [None]
  - MYDRIASIS [None]
  - SUDDEN DEATH [None]
